FAERS Safety Report 25410333 (Version 2)
Quarter: 2025Q3

REPORT INFORMATION
  Report Type: Spontaneous
  Country: US (occurrence: US)
  Receive Date: 20250608
  Receipt Date: 20250707
  Transmission Date: 20251020
  Serious: No
  Sender: SANOFI AVENTIS
  Company Number: US-SA-2025SA161200

PATIENT
  Age: 90 Year
  Sex: Male

DRUGS (5)
  1. DUPIXENT [Suspect]
     Active Substance: DUPILUMAB
     Indication: Dermatitis atopic
     Route: 058
     Dates: start: 20221228
  2. JARDIANCE [Concomitant]
     Active Substance: EMPAGLIFLOZIN
  3. AMLODIPINE [Concomitant]
     Active Substance: AMLODIPINE BESYLATE
  4. LISINOPRIL [Concomitant]
     Active Substance: LISINOPRIL
  5. LASIX [Concomitant]
     Active Substance: FUROSEMIDE

REACTIONS (1)
  - Arthralgia [Unknown]

NARRATIVE: CASE EVENT DATE: 20250604
